FAERS Safety Report 8408066-9 (Version None)
Quarter: 2012Q2

REPORT INFORMATION
  Report Type: 
  Country: None (occurrence: None)
  Receive Date: 20120604
  Receipt Date: 20120525
  Transmission Date: 20120825
  Serious: Yes (Hospitalization)
  Sender: FDA-Public Use
  Company Number: US-MERCK-1203USA01686

PATIENT
  Age: 61 Year
  Sex: Female

DRUGS (12)
  1. PROTONIX [Concomitant]
     Route: 065
     Dates: start: 20010520
  2. NIFEDIPINE [Concomitant]
     Route: 065
     Dates: start: 20000101
  3. FOSAMAX PLUS D [Suspect]
     Route: 048
     Dates: start: 20061001, end: 20070620
  4. FOSAMAX [Suspect]
     Route: 048
     Dates: start: 20080201, end: 20101001
  5. PROCARDIA XL [Concomitant]
     Route: 065
     Dates: start: 20000101
  6. NEXIUM [Concomitant]
     Route: 065
     Dates: start: 20010520
  7. FOSAMAX [Suspect]
     Indication: OSTEOPOROSIS
     Route: 048
     Dates: start: 20011220, end: 20111001
  8. PRILOSEC [Concomitant]
     Route: 065
     Dates: start: 20010520
  9. FOSAMAX [Suspect]
     Indication: OSTEOPENIA
     Route: 048
     Dates: start: 20011220, end: 20111001
  10. FOSAMAX [Suspect]
     Route: 048
     Dates: start: 20080201, end: 20101001
  11. EVISTA [Concomitant]
     Route: 065
     Dates: start: 20000101, end: 20020101
  12. CELEXA [Concomitant]
     Route: 065
     Dates: start: 20000101

REACTIONS (9)
  - FRACTURE NONUNION [None]
  - FOOT FRACTURE [None]
  - HYPERTONIC BLADDER [None]
  - TOOTH DISORDER [None]
  - FEMUR FRACTURE [None]
  - FRACTURE DELAYED UNION [None]
  - BLOOD CHOLESTEROL INCREASED [None]
  - ADVERSE EVENT [None]
  - LOW TURNOVER OSTEOPATHY [None]
